FAERS Safety Report 20525037 (Version 2)
Quarter: 2022Q2

REPORT INFORMATION
  Report Type: Spontaneous
  Country: IN (occurrence: IN)
  Receive Date: 20220228
  Receipt Date: 20220407
  Transmission Date: 20220720
  Serious: Yes (Death, Hospitalization, Other)
  Sender: FDA-Public Use
  Company Number: IN-ASTELLAS-2022US007250

PATIENT
  Age: 41 Year
  Sex: Male

DRUGS (5)
  1. TACROLIMUS [Suspect]
     Active Substance: TACROLIMUS
     Indication: Renal transplant
     Route: 048
     Dates: start: 2018
  2. TACROLIMUS [Suspect]
     Active Substance: TACROLIMUS
     Dosage: UNK UNK, (VARIABLE (TO MAINTAIN TAC C0 OF 5-7 BEYOND 3 MONTHS)) TWICE DAILY
     Route: 048
     Dates: end: 2019
  3. MYCOPHENOLATE MOFETIL [Concomitant]
     Active Substance: MYCOPHENOLATE MOFETIL
     Indication: Renal transplant
     Route: 065
  4. PREDNISOLONE [Concomitant]
     Active Substance: PREDNISOLONE
     Indication: Renal transplant
     Route: 065
  5. CYCLOSPORINE [Concomitant]
     Active Substance: CYCLOSPORINE
     Indication: Renal transplant
     Dosage: UNK UNK, UNKNOWN FREQ. (TROUGH LEVELS BETWEEN 5 AND 8 NG/ML)
     Route: 065

REACTIONS (6)
  - Shock [Fatal]
  - Septic shock [Fatal]
  - Mycetoma mycotic [Fatal]
  - Renal graft infection [Fatal]
  - Systemic mycosis [Fatal]
  - Postoperative wound infection [Not Recovered/Not Resolved]
